FAERS Safety Report 6936980-X (Version None)
Quarter: 2010Q3

REPORT INFORMATION
  Report Type: 
  Country: None (occurrence: None)
  Receive Date: 20100823
  Receipt Date: 20100809
  Transmission Date: 20110219
  Serious: Yes (Other)
  Sender: FDA-Public Use
  Company Number: PHHY2010BR53085

PATIENT
  Sex: Male

DRUGS (1)
  1. DIOVAN HCT [Suspect]
     Indication: DEVICE RELATED INFECTION
     Dosage: 320/12.5 MG, UNK

REACTIONS (2)
  - CHOLELITHIASIS [None]
  - CHOLELITHOTOMY [None]
